FAERS Safety Report 9970247 (Version 1)
Quarter: 2014Q1

REPORT INFORMATION
  Report Type: Spontaneous
  Country: US (occurrence: US)
  Receive Date: 20140306
  Receipt Date: 20140306
  Transmission Date: 20141002
  Serious: No
  Sender: FDA-Public Use
  Company Number: US-BAYER-2014-029202

PATIENT
  Age: 62 Year
  Sex: Female
  Weight: 49.89 kg

DRUGS (10)
  1. ALEVE CAPLET [Suspect]
  2. TYLENOL [PARACETAMOL] [Suspect]
  3. NAPROXEN [Suspect]
  4. VOLTAREN [DICLOFENAC] [Concomitant]
     Indication: INFLAMMATION
     Dosage: UNK UNK, QID
     Route: 061
     Dates: start: 201401
  5. VOLTAREN [DICLOFENAC] [Concomitant]
     Indication: INFLAMMATION
     Dosage: UNK UNK, TID
     Route: 061
     Dates: start: 201401
  6. VOLTAREN [DICLOFENAC] [Concomitant]
     Indication: INFLAMMATION
     Dosage: UNK UNK, BID
     Route: 061
     Dates: start: 201401
  7. VOLTAREN [DICLOFENAC] [Concomitant]
     Indication: INFLAMMATION
     Dosage: UNK UNK, QD
     Route: 061
     Dates: start: 201401
  8. SIMVASTATIN [Concomitant]
     Indication: BLOOD CHOLESTEROL INCREASED
     Dosage: 1 DF, QD
  9. ERYTHROMYCIN [Concomitant]
     Indication: BRONCHITIS
     Dosage: UNK
     Dates: start: 20140124
  10. VITAMIN D [Concomitant]
     Dosage: UNK
     Dates: start: 20140114

REACTIONS (1)
  - Drug ineffective [None]
